FAERS Safety Report 5746083-8 (Version None)
Quarter: 2008Q2

REPORT INFORMATION
  Report Type: 
  Country: None (occurrence: None)
  Receive Date: 20080522
  Receipt Date: 20080502
  Transmission Date: 20081010
  Serious: No
  Sender: FDA-Public Use
  Company Number: A0663354A

PATIENT
  Age: 53 Year
  Sex: Male

DRUGS (3)
  1. BACTROBAN [Suspect]
     Indication: SKIN INFECTION
     Route: 061
     Dates: start: 20070709, end: 20070710
  2. AUGMENTIN '125' [Suspect]
     Indication: OTITIS MEDIA
     Route: 048
     Dates: start: 20080129, end: 20080129
  3. NO CONCURRENT MEDICATION [Concomitant]

REACTIONS (7)
  - ERYTHEMA [None]
  - HEADACHE [None]
  - MALAISE [None]
  - NAUSEA [None]
  - PAIN [None]
  - RESTLESSNESS [None]
  - VOMITING [None]
